FAERS Safety Report 7593256-8 (Version None)
Quarter: 2011Q3

REPORT INFORMATION
  Report Type: 
  Country: None (occurrence: None)
  Receive Date: 20110706
  Receipt Date: 20110624
  Transmission Date: 20111222
  Serious: Yes (Other)
  Sender: FDA-Public Use
  Company Number: JP-PFIZER INC-2011150007

PATIENT
  Age: 61 Year
  Sex: Female

DRUGS (4)
  1. NORVASC [Suspect]
     Indication: HYPERTENSION
     Dosage: 5 MG, DAILY
     Route: 048
     Dates: start: 20020516, end: 20110621
  2. INSIDE [Concomitant]
  3. LIPITOR [Suspect]
     Indication: HYPERLIPIDAEMIA
     Dosage: 10 MG, DAILY
     Route: 048
     Dates: start: 20030508, end: 20110621
  4. EPINASTINE HYDROCHLORIDE [Concomitant]
     Dosage: UNK
     Route: 048
     Dates: start: 20110411

REACTIONS (1)
  - PLATELET COUNT DECREASED [None]
